FAERS Safety Report 7182641-4 (Version None)
Quarter: 2010Q4

REPORT INFORMATION
  Report Type: 
  Country: None (occurrence: None)
  Receive Date: 20101221
  Receipt Date: 20100518
  Transmission Date: 20110411
  Serious: No
  Sender: FDA-Public Use
  Company Number: US-AMGEN-KDL412977

PATIENT

DRUGS (6)
  1. ENBREL [Suspect]
     Indication: PRODUCT USED FOR UNKNOWN INDICATION
     Dosage: 50 MG, 2 TIMES/WK
     Route: 058
  2. RAMIPRIL [Concomitant]
     Dosage: 10 MG, UNK
  3. ASCORBIC ACID [Concomitant]
     Dosage: 1000 MG, UNK
  4. ROSUVASTATIN CALCIUM [Concomitant]
     Dosage: 20 MG, UNK
  5. SAW PALMETTO [Concomitant]
     Dosage: UNK UNK, UNK
  6. ERGOCALCIFEROL [Concomitant]
     Dosage: 1000 IU, UNK

REACTIONS (1)
  - INJECTION SITE PAIN [None]
